FAERS Safety Report 11391789 (Version 1)
Quarter: 2015Q3

REPORT INFORMATION
  Report Type: Spontaneous
  Country: US (occurrence: None)
  Receive Date: 20150814
  Receipt Date: 20150814
  Transmission Date: 20151125
  Serious: Yes (Hospitalization, Disabling)
  Sender: FDA-Public Use
  Company Number: None

PATIENT
  Age: 69 Year
  Sex: Female
  Weight: 58.51 kg

DRUGS (9)
  1. OXYGEN. [Concomitant]
     Active Substance: OXYGEN
  2. OXYBUTYNIN [Concomitant]
     Active Substance: OXYBUTYNIN
  3. POTASSIUM [Concomitant]
     Active Substance: POTASSIUM
  4. XANAX [Concomitant]
     Active Substance: ALPRAZOLAM
  5. IMODIUM [Concomitant]
     Active Substance: LOPERAMIDE HYDROCHLORIDE
  6. VITAMIN D3 [Concomitant]
     Active Substance: CHOLECALCIFEROL
  7. OMEPRAZOLE. [Concomitant]
     Active Substance: OMEPRAZOLE
  8. CALCIUM [Concomitant]
     Active Substance: CALCIUM
  9. OPSUMIT [Suspect]
     Active Substance: MACITENTAN
     Indication: PULMONARY ARTERIAL HYPERTENSION
     Route: 048
     Dates: start: 20140701, end: 20150813

REACTIONS (12)
  - Weight decreased [None]
  - Paraesthesia [None]
  - Hypoaesthesia [None]
  - Pulmonary fibrosis [None]
  - Foaming at mouth [None]
  - Dysphagia [None]
  - Swelling [None]
  - Rib fracture [None]
  - Upper respiratory tract congestion [None]
  - Cystitis [None]
  - Fluid retention [None]
  - Increased viscosity of upper respiratory secretion [None]

NARRATIVE: CASE EVENT DATE: 20150201
